FAERS Safety Report 8983670 (Version 1)
Quarter: 2012Q4

REPORT INFORMATION
  Report Type: 
  Country: AR (occurrence: AR)
  Receive Date: 20121224
  Receipt Date: 20121224
  Transmission Date: 20130627
  Serious: Yes (Death, Hospitalization)
  Sender: FDA-Public Use
  Company Number: PHHY2012AR118723

PATIENT
  Sex: Female

DRUGS (2)
  1. EXELON PATCH [Suspect]
     Indication: DEMENTIA ALZHEIMER^S TYPE
     Dosage: 4.6 mg/24 hours
     Route: 062
     Dates: start: 2011
  2. EXELON PATCH [Suspect]
     Dosage: 9.5 mg/24 hours
     Route: 062
     Dates: end: 20121019

REACTIONS (3)
  - Infection [Fatal]
  - Peritonitis [Unknown]
  - Acute abdomen [Unknown]
